FAERS Safety Report 11843963 (Version 1)
Quarter: 2015Q4

REPORT INFORMATION
  Report Type: Spontaneous
  Country: US (occurrence: US)
  Receive Date: 20151217
  Receipt Date: 20151217
  Transmission Date: 20160305
  Serious: Yes (Death, Life-Threatening, Other)
  Sender: FDA-Public Use
  Company Number: US-JNJFOC-20151203560

PATIENT
  Age: 58 Year
  Sex: Male

DRUGS (6)
  1. FAMOTIDINE. [Suspect]
     Active Substance: FAMOTIDINE
     Indication: PRODUCT USED FOR UNKNOWN INDICATION
     Route: 065
  2. FAMOTIDINE. [Suspect]
     Active Substance: FAMOTIDINE
     Route: 065
  3. DICLOFENAC [Suspect]
     Active Substance: DICLOFENAC
     Indication: PRODUCT USED FOR UNKNOWN INDICATION
     Route: 065
  4. ASPIRIN. [Suspect]
     Active Substance: ASPIRIN
     Indication: PRODUCT USED FOR UNKNOWN INDICATION
     Route: 065
  5. ALL OTHER THERAPEUTIC PRODUCTS [Suspect]
     Active Substance: UNSPECIFIED INGREDIENT
     Indication: PRODUCT USED FOR UNKNOWN INDICATION
     Route: 065
  6. ALUMINIUM OXIDE W/MAGNESIUM OXIDE [Suspect]
     Active Substance: ALUMINUM OXIDE\MAGNESIUM OXIDE
     Indication: PRODUCT USED FOR UNKNOWN INDICATION
     Route: 065

REACTIONS (9)
  - Haematology test abnormal [Unknown]
  - Pulmonary haemorrhage [Fatal]
  - Atrial flutter [Unknown]
  - Non-small cell lung cancer [Fatal]
  - Heart rate increased [Unknown]
  - Coagulation test abnormal [Unknown]
  - Non-small cell lung cancer metastatic [Fatal]
  - Cardiovascular insufficiency [Fatal]
  - Laboratory test abnormal [Unknown]
